FAERS Safety Report 16799262 (Version 1)
Quarter: 2019Q3

REPORT INFORMATION
  Report Type: Spontaneous
  Country: US (occurrence: US)
  Receive Date: 20190722
  Receipt Date: 20190722
  Transmission Date: 20191005
  Serious: Yes (Hospitalization)
  Sender: FDA-Public Use
  Company Number: None

PATIENT
  Age: 68 Year
  Sex: Female

DRUGS (1)
  1. OCTAGAM IMMUNE GLOBULIN (HUMAN) [Suspect]
     Active Substance: HUMAN IMMUNOGLOBULIN G
     Indication: MYASTHENIA GRAVIS
     Route: 042
     Dates: start: 20190718

REACTIONS (8)
  - Infusion related reaction [None]
  - Stridor [None]
  - Cough [None]
  - Back pain [None]
  - Chest discomfort [None]
  - Dystonia [None]
  - Throat irritation [None]
  - Muscle spasms [None]

NARRATIVE: CASE EVENT DATE: 20190718
